FAERS Safety Report 17540079 (Version 1)
Quarter: 2020Q1

REPORT INFORMATION
  Report Type: Spontaneous
  Country: CA (occurrence: CA)
  Receive Date: 20200313
  Receipt Date: 20200313
  Transmission Date: 20200409
  Serious: Yes (Other)
  Sender: FDA-Public Use
  Company Number: NVSC2020CA065072

PATIENT
  Age: 48 Year
  Sex: Female

DRUGS (7)
  1. CYCLOSPORINE. [Suspect]
     Active Substance: CYCLOSPORINE
     Indication: PSORIASIS
     Dosage: UNK UNK, QW
     Route: 065
  2. REMICADE [Suspect]
     Active Substance: INFLIXIMAB
     Indication: PRODUCT USED FOR UNKNOWN INDICATION
     Dosage: 350 MG
     Route: 042
  3. NEORAL [Suspect]
     Active Substance: CYCLOSPORINE
     Indication: PSORIASIS
     Dosage: 150 MG, QW
     Route: 048
  4. NEORAL [Suspect]
     Active Substance: CYCLOSPORINE
     Dosage: 150 MG, QW
     Route: 048
  5. HUMIRA [Suspect]
     Active Substance: ADALIMUMAB
     Indication: PRODUCT USED FOR UNKNOWN INDICATION
     Dosage: 40 MG, QW
     Route: 058
  6. ENBREL [Suspect]
     Active Substance: ETANERCEPT
     Indication: PRODUCT USED FOR UNKNOWN INDICATION
     Dosage: 50 MG
     Route: 058
  7. ENBREL [Suspect]
     Active Substance: ETANERCEPT
     Dosage: 50 MG, QW
     Route: 058

REACTIONS (15)
  - Arthritis [Recovered/Resolved]
  - Glucose tolerance impaired [Recovered/Resolved]
  - Oedema [Recovered/Resolved]
  - Blood alkaline phosphatase increased [Recovered/Resolved]
  - Haemoglobin decreased [Recovered/Resolved]
  - Guttate psoriasis [Recovered/Resolved]
  - Psoriasis [Recovered/Resolved]
  - Pneumonia [Recovered/Resolved]
  - Urticaria [Recovered/Resolved]
  - Bronchitis [Recovered/Resolved]
  - Glycosylated haemoglobin increased [Recovered/Resolved]
  - Blood iron decreased [Recovered/Resolved]
  - Blood pressure increased [Recovered/Resolved]
  - Serum ferritin decreased [Recovered/Resolved]
  - Infection [Recovered/Resolved]
